FAERS Safety Report 4296374-5 (Version None)
Quarter: 2004Q1

REPORT INFORMATION
  Report Type: 
  Country: None (occurrence: None)
  Receive Date: 20040213
  Receipt Date: 20040213
  Transmission Date: 20041129
  Serious: Yes (Hospitalization)
  Sender: FDA-Public Use
  Company Number: None

PATIENT
  Sex: Male
  Weight: 97.977 kg

DRUGS (9)
  1. PRINIVIL [Suspect]
     Indication: HYPERTENSION
     Dosage: PO PRIOR TO ADMISSION
     Route: 048
  2. DOXAZOSIN MESYLATE [Concomitant]
  3. FLOMAX [Concomitant]
  4. INDERAL [Concomitant]
  5. LIPITOR [Concomitant]
  6. PLAVIX [Concomitant]
  7. SINEMET [Concomitant]
  8. SYNTHROID [Concomitant]
  9. VIOXX [Concomitant]

REACTIONS (2)
  - BLOOD PRESSURE DECREASED [None]
  - SYNCOPE [None]
